FAERS Safety Report 9370040 (Version 3)
Quarter: 2013Q3

REPORT INFORMATION
  Report Type: Report from Study
  Country: US (occurrence: US)
  Receive Date: 20130626
  Receipt Date: 20130906
  Transmission Date: 20140515
  Serious: Yes (Hospitalization)
  Sender: FDA-Public Use
  Company Number: US-PFIZER INC-2013183802

PATIENT
  Age: 62 Year
  Sex: Female
  Weight: 126 kg

DRUGS (15)
  1. OXALIPLATIN [Suspect]
     Indication: OESOPHAGEAL CARCINOMA
     Dosage: 85 MG/M2, CYCLIC, ON DAY1 EVERY 14 DAYS
     Route: 042
     Dates: start: 20120313, end: 20120508
  2. FLUOROURACIL [Suspect]
     Indication: OESOPHAGEAL CARCINOMA
     Dosage: 400 MG/M2, CYCLIC, ON DAY1 EVERY 14 DAYS
     Route: 040
     Dates: start: 20120313, end: 20120508
  3. FLUOROURACIL [Suspect]
     Dosage: 2400 MG/M2, CYCLIC (CONTINUOUS FOR 46-48 HRS), ON DAY1 EVERY 14 DAYS
     Route: 041
     Dates: start: 20120313, end: 20120508
  4. BLINDED THERAPY [Suspect]
     Indication: OESOPHAGEAL CARCINOMA
     Dosage: ON DAY1 EVERY 14 DAYS
     Route: 042
     Dates: start: 20120313, end: 20120327
  5. LEUCOVORIN [Suspect]
     Indication: OESOPHAGEAL CARCINOMA
     Dosage: 400 MG/M2, CYCLIC, ON DAY1 EVERY 14 DAYS
     Route: 042
     Dates: start: 20120313, end: 20120508
  6. LEVOTHYROXINE [Concomitant]
     Dosage: UNK
     Dates: start: 1975
  7. LASIX [Concomitant]
     Dosage: UNK
     Dates: start: 1980
  8. OMEPRAZOLE [Concomitant]
     Dosage: UNK
     Dates: start: 1980
  9. DITROPAN [Concomitant]
     Dosage: UNK
     Dates: start: 2011
  10. BENTYL [Concomitant]
     Dosage: UNK
     Dates: start: 2011
  11. ALBUTEROL [Concomitant]
     Dosage: UNK
     Dates: start: 2010
  12. COLACE [Concomitant]
     Dosage: UNK
     Dates: start: 2010
  13. REGLAN [Concomitant]
     Dosage: UNK
     Dates: start: 2010
  14. ZOFRAN [Concomitant]
     Dosage: UNK
     Dates: start: 20120611
  15. ATIVAN [Concomitant]
     Dosage: UNK
     Dates: start: 20120315

REACTIONS (1)
  - Hypotension [Recovered/Resolved]
